FAERS Safety Report 18609439 (Version 1)
Quarter: 2020Q4

REPORT INFORMATION
  Report Type: Spontaneous
  Country: US (occurrence: US)
  Receive Date: 20201214
  Receipt Date: 20201214
  Transmission Date: 20210114
  Serious: Yes (Hospitalization, Other)
  Sender: FDA-Public Use
  Company Number: US-BAXTER-2020BAX025044

PATIENT
  Age: 33 Year
  Sex: Female

DRUGS (11)
  1. CYCLOPHOSPHAMIDE FOR INJECTION, USP [Suspect]
     Active Substance: CYCLOPHOSPHAMIDE
     Dosage: REMAINING 3 CYCLES OF 6 CYCLES OF TAC REGIMEN
     Route: 065
     Dates: start: 202006
  2. ADRIAMYCIN [Suspect]
     Active Substance: DOXORUBICIN HYDROCHLORIDE
     Indication: BREAST CANCER FEMALE
     Dosage: FIRST 3 CYCLES OF 6 CYCLES OF TAC REGIMEN
     Route: 065
     Dates: start: 20200211
  3. FASLODEX [Suspect]
     Active Substance: FULVESTRANT
     Indication: BREAST CANCER FEMALE
     Route: 065
     Dates: start: 20191227
  4. ABRAXANE [Suspect]
     Active Substance: PACLITAXEL
     Indication: BREAST CANCER FEMALE
     Dosage: 2 CYCLES
     Route: 065
     Dates: start: 20200629
  5. DOCETAXEL. [Suspect]
     Active Substance: DOCETAXEL
     Indication: BREAST CANCER FEMALE
     Dosage: FIRST 3 CYCLES OF 6 CYCLES OF TAC REGIMEN
     Route: 065
     Dates: start: 20200211
  6. ERIBULIN [Suspect]
     Active Substance: ERIBULIN
     Indication: BREAST CANCER FEMALE
     Route: 065
     Dates: start: 20200813
  7. LUPRON [Suspect]
     Active Substance: LEUPROLIDE ACETATE
     Indication: BREAST CANCER FEMALE
     Dosage: PALLIATIVE TREATMENT
     Route: 065
     Dates: start: 20190424
  8. ADRIAMYCIN [Suspect]
     Active Substance: DOXORUBICIN HYDROCHLORIDE
     Dosage: REMAINING 3 CYCLES OF 6 CYCLES OF TAC REGIMEN
     Route: 065
     Dates: start: 202006
  9. LETROZOLE. [Suspect]
     Active Substance: LETROZOLE
     Indication: BREAST CANCER FEMALE
     Dosage: PALLIATIVE TREATMENT
     Route: 065
     Dates: start: 20190424
  10. CYCLOPHOSPHAMIDE FOR INJECTION, USP [Suspect]
     Active Substance: CYCLOPHOSPHAMIDE
     Indication: BREAST CANCER FEMALE
     Dosage: FIRST 3 CYCLES OF 6 CYCLES OF TAC REGIMEN
     Route: 065
     Dates: start: 20200211
  11. PALBOCICLIB [Suspect]
     Active Substance: PALBOCICLIB
     Indication: BREAST CANCER FEMALE
     Dosage: PALLIATIVE TREATMENT
     Route: 065
     Dates: start: 20190424

REACTIONS (11)
  - Brain oedema [Unknown]
  - Hypoxia [Unknown]
  - Back pain [Unknown]
  - Metastatic neoplasm [Unknown]
  - Lung infiltration [Unknown]
  - Drug ineffective [Unknown]
  - Therapy partial responder [Unknown]
  - Pathological fracture [Unknown]
  - Disease progression [Unknown]
  - Metastases to central nervous system [Unknown]
  - Condition aggravated [Unknown]

NARRATIVE: CASE EVENT DATE: 20190309
